FAERS Safety Report 5794961-6 (Version None)
Quarter: 2008Q2

REPORT INFORMATION
  Report Type: 
  Country: None (occurrence: None)
  Receive Date: 20080630
  Receipt Date: 20080619
  Transmission Date: 20081010
  Serious: Yes (Hospitalization)
  Sender: FDA-Public Use
  Company Number: JP-ROCHE-564547

PATIENT
  Sex: Male
  Weight: 45 kg

DRUGS (10)
  1. ROCEPHIN [Suspect]
     Indication: PNEUMONIA
     Dosage: ROUTE: INTRAVENOUS (NOT OTHERWISE SPECIFIED)
     Route: 042
     Dates: start: 20080422, end: 20080422
  2. ROCEPHIN [Suspect]
     Route: 042
     Dates: start: 20080423, end: 20080430
  3. ZITHROMAX [Suspect]
     Indication: PNEUMONIA
     Route: 048
     Dates: start: 20080422, end: 20080424
  4. 1 CONCOMITANT DRUG [Concomitant]
     Dosage: DRUG NAME: ANTIBIOTIC PREPARATIONS ACTING MAINLY ON GRAM-POSITIVE BA
     Route: 048
     Dates: start: 20080421, end: 20080422
  5. SULPERAZON [Concomitant]
     Dosage: ROUTE: INJECTABLE (NOT OTHERWISE SPECIFIED)
     Route: 050
     Dates: start: 20080421, end: 20080422
  6. PENTCILLIN [Concomitant]
     Dosage: ROUTE: INJECTABLE (NOT OTHERWISE SPECIFIED)
     Route: 050
     Dates: start: 20080422, end: 20080422
  7. MUCODYNE [Concomitant]
     Dosage: FORM: ORAL FORMULATION (NOT OTHERWISE SPECIFIED)
     Route: 048
  8. MUCOSTA [Concomitant]
     Dosage: FORM: ORAL FORMULATION (NOT OTHERWISE SPECIFIED)
     Route: 048
  9. LAC B-R [Concomitant]
     Dosage: DRUG: LACB R(ANTIBIOTICS-RESISTANT LACTIC ACID BACTERIAE)
     Route: 048
  10. MAGMITT [Concomitant]
     Route: 048

REACTIONS (2)
  - CHOLECYSTITIS ACUTE [None]
  - WHITE BLOOD CELL COUNT DECREASED [None]
